FAERS Safety Report 7744121-4 (Version None)
Quarter: 2011Q3

REPORT INFORMATION
  Report Type: 
  Country: None (occurrence: None)
  Receive Date: 20110912
  Receipt Date: 20110902
  Transmission Date: 20111222
  Serious: Yes (Life-Threatening, Hospitalization)
  Sender: FDA-Public Use
  Company Number: SE-JNJFOC-20110900095

PATIENT
  Age: 74 Year
  Sex: Female

DRUGS (4)
  1. TOLTERODINE TARTRATE [Concomitant]
  2. IMURAN [Concomitant]
  3. VAGIFEM [Concomitant]
  4. REMICADE [Suspect]
     Indication: CROHN'S DISEASE
     Route: 042
     Dates: start: 20101118, end: 20110616

REACTIONS (4)
  - MUSCULOSKELETAL STIFFNESS [None]
  - PAIN IN EXTREMITY [None]
  - DYSPNOEA [None]
  - PERICARDITIS [None]
